FAERS Safety Report 21515222 (Version 1)
Quarter: 2022Q4

REPORT INFORMATION
  Report Type: Spontaneous
  Country: AR (occurrence: None)
  Receive Date: 20221027
  Receipt Date: 20221027
  Transmission Date: 20230113
  Serious: Yes (Hospitalization, Other)
  Sender: FDA-Public Use
  Company Number: 2022A354192

PATIENT
  Age: 40 Year
  Sex: Female

DRUGS (2)
  1. BUDESONIDE [Suspect]
     Active Substance: BUDESONIDE
     Route: 055
  2. ALBUTEROL [Concomitant]
     Active Substance: ALBUTEROL

REACTIONS (2)
  - Asthmatic crisis [Unknown]
  - Drug ineffective [Not Recovered/Not Resolved]
